FAERS Safety Report 21462840 (Version 2)
Quarter: 2023Q1

REPORT INFORMATION
  Report Type: Spontaneous
  Country: IT (occurrence: IT)
  Receive Date: 20221017
  Receipt Date: 20230207
  Transmission Date: 20230417
  Serious: Yes (Hospitalization)
  Sender: FDA-Public Use
  Company Number: None

PATIENT
  Age: 72 Year
  Sex: Male

DRUGS (1)
  1. METFORMIN HYDROCHLORIDE\VILDAGLIPTIN [Suspect]
     Active Substance: METFORMIN HYDROCHLORIDE\VILDAGLIPTIN
     Indication: Type 2 diabetes mellitus
     Dosage: UNK (1 CP DUE VOTE AL DIIL PAZIENTE ASSUMEVA METFORMINA NON IN ASSOCIAZIONE CON VILDAGLIPTIN DALLA D
     Route: 065
     Dates: start: 2016, end: 20220812

REACTIONS (6)
  - Acute kidney injury [Unknown]
  - Anuria [Unknown]
  - Vomiting [Unknown]
  - Lactic acidosis [Recovered/Resolved]
  - Diarrhoea [Unknown]
  - Nausea [Unknown]

NARRATIVE: CASE EVENT DATE: 20220802
